FAERS Safety Report 18836394 (Version 1)
Quarter: 2021Q1

REPORT INFORMATION
  Report Type: Spontaneous
  Country: US (occurrence: US)
  Receive Date: 20210203
  Receipt Date: 20210203
  Transmission Date: 20210419
  Serious: Yes (Other)
  Sender: FDA-Public Use
  Company Number: US-ALLERGAN-2009527US

PATIENT

DRUGS (1)
  1. BOTOX [Suspect]
     Active Substance: ONABOTULINUMTOXINA
     Indication: MIGRAINE
     Dosage: 200 UNITS, SINGLE

REACTIONS (8)
  - Syncope [Unknown]
  - Cold sweat [Unknown]
  - Blood pressure decreased [Unknown]
  - Dizziness [Unknown]
  - Off label use [Unknown]
  - Pallor [Unknown]
  - Anxiety [Unknown]
  - Nausea [Unknown]
